FAERS Safety Report 9335986 (Version 2)
Quarter: 2013Q2

REPORT INFORMATION
  Report Type: Spontaneous
  Country: CN (occurrence: CN)
  Receive Date: 20130606
  Receipt Date: 20130626
  Transmission Date: 20140414
  Serious: Yes (Hospitalization, Other)
  Sender: FDA-Public Use
  Company Number: CN-ROCHE-1233356

PATIENT
  Age: 50 Year
  Sex: 0

DRUGS (2)
  1. AVASTIN [Suspect]
     Indication: GASTROINTESTINAL CARCINOMA
     Route: 041
     Dates: start: 201305
  2. AVASTIN [Suspect]
     Indication: METASTASES TO LIVER

REACTIONS (3)
  - Blood lactate dehydrogenase increased [Unknown]
  - Blood creatine phosphokinase increased [Unknown]
  - Cardiac failure [Unknown]
